FAERS Safety Report 4488369-3 (Version None)
Quarter: 2004Q4

REPORT INFORMATION
  Report Type: 
  Country: None (occurrence: None)
  Receive Date: 20041026
  Receipt Date: 20041015
  Transmission Date: 20050328
  Serious: Yes (Hospitalization)
  Sender: FDA-Public Use
  Company Number: 234611K04USA

PATIENT
  Age: 45 Year
  Sex: Female

DRUGS (6)
  1. REBIF [Suspect]
     Indication: MULTIPLE SCLEROSIS
     Dosage: SEE IMAGE
     Route: 058
     Dates: start: 20030623, end: 20040908
  2. REBIF [Suspect]
     Indication: MULTIPLE SCLEROSIS
     Dosage: SEE IMAGE
     Route: 058
     Dates: start: 20040911
  3. VENLAFAXINE HYDROCHLORIDE [Concomitant]
     Dosage: 150 MG
  4. ZOLPIDEM TARTRATE [Concomitant]
  5. ... [Concomitant]
  6. TRAZODONE HCL [Concomitant]

REACTIONS (20)
  - ALANINE AMINOTRANSFERASE INCREASED [None]
  - ANOREXIA [None]
  - AREFLEXIA [None]
  - ASPARTATE AMINOTRANSFERASE INCREASED [None]
  - BALANCE DISORDER [None]
  - CHOKING [None]
  - CONDITION AGGRAVATED [None]
  - DEPRESSION [None]
  - DISEASE RECURRENCE [None]
  - DYSARTHRIA [None]
  - DYSPHAGIA [None]
  - DYSSTASIA [None]
  - HEADACHE [None]
  - HYPOAESTHESIA [None]
  - INFLUENZA LIKE ILLNESS [None]
  - INSOMNIA [None]
  - LABORATORY TEST ABNORMAL [None]
  - MULTIPLE SCLEROSIS [None]
  - TREMOR [None]
  - URINARY TRACT INFECTION [None]
